FAERS Safety Report 24576110 (Version 2)
Quarter: 2024Q4

REPORT INFORMATION
  Report Type: Report from Study
  Country: US (occurrence: US)
  Receive Date: 20241104
  Receipt Date: 20241128
  Transmission Date: 20250114
  Serious: Yes (Other)
  Sender: ABBVIE
  Company Number: US-ABBVIE-5980941

PATIENT
  Age: 58 Year
  Sex: Female
  Weight: 49 kg

DRUGS (2)
  1. HUMIRA [Suspect]
     Active Substance: ADALIMUMAB
     Indication: Crohn^s disease
     Dosage: FORM STRENGTH: 40 MG, DISCONTINUED IN 2024
     Route: 058
     Dates: start: 20240409
  2. HUMIRA [Suspect]
     Active Substance: ADALIMUMAB
     Dosage: FORM STRENGTH: 40 MG
     Route: 058

REACTIONS (3)
  - Drug-induced liver injury [Not Recovered/Not Resolved]
  - LE cells present [Unknown]
  - Hepatic enzyme abnormal [Not Recovered/Not Resolved]

NARRATIVE: CASE EVENT DATE: 20240101
